FAERS Safety Report 6193893-1 (Version None)
Quarter: 2009Q2

REPORT INFORMATION
  Report Type: 
  Country: None (occurrence: None)
  Receive Date: 20090514
  Receipt Date: 20090429
  Transmission Date: 20091009
  Serious: Yes (Hospitalization)
  Sender: FDA-Public Use
  Company Number: GXKR2009JP05435

PATIENT
  Age: 88 Year
  Sex: Male

DRUGS (1)
  1. PREDNISOLONE [Suspect]
     Indication: MICROSCOPIC POLYANGIITIS
     Dosage: 5 MG, ORAL
     Route: 048

REACTIONS (2)
  - ABDOMINAL PAIN [None]
  - LARGE INTESTINE PERFORATION [None]
